FAERS Safety Report 21576161 (Version 4)
Quarter: 2023Q1

REPORT INFORMATION
  Report Type: Report from Study
  Country: US (occurrence: US)
  Receive Date: 20221110
  Receipt Date: 20230211
  Transmission Date: 20230417
  Serious: No
  Sender: FDA-Public Use
  Company Number: US-002147023-NVSC2022US252870

PATIENT
  Sex: Male

DRUGS (2)
  1. COSENTYX [Suspect]
     Active Substance: SECUKINUMAB
     Indication: Psoriasis
     Dosage: 300 MG
     Route: 065
  2. COSENTYX [Suspect]
     Active Substance: SECUKINUMAB
     Dosage: UNK (LAST INJECTION)
     Route: 065

REACTIONS (5)
  - Abdominal pain upper [Recovered/Resolved]
  - Impaired healing [Unknown]
  - Oropharyngeal pain [Unknown]
  - Facial pain [Unknown]
  - Headache [Unknown]
